FAERS Safety Report 5629838-X (Version None)
Quarter: 2008Q1

REPORT INFORMATION
  Report Type: 
  Country: None (occurrence: None)
  Receive Date: 20080214
  Receipt Date: 20080131
  Transmission Date: 20080703
  Serious: Yes (Death)
  Sender: FDA-Public Use
  Company Number: CLOF-1000081

PATIENT
  Age: 76 Year
  Sex: 0

DRUGS (1)
  1. CLOFARABINE           (CLOFARABINE) SOLUTION [Suspect]
     Indication: ACUTE LEUKAEMIA
     Dates: start: 20080116, end: 20080120

REACTIONS (1)
  - PNEUMONIA [None]
